FAERS Safety Report 23438850 (Version 1)
Quarter: 2024Q1

REPORT INFORMATION
  Report Type: Spontaneous
  Country: US (occurrence: None)
  Receive Date: 20240124
  Receipt Date: 20240124
  Transmission Date: 20240410
  Serious: Yes (Other)
  Sender: FDA-Public Use
  Company Number: None

PATIENT
  Age: 43 Year
  Sex: Female
  Weight: 65.25 kg

DRUGS (1)
  1. LAMOTRIGINE [Suspect]
     Active Substance: LAMOTRIGINE
     Indication: Depression
     Dates: start: 20240101, end: 20240122

REACTIONS (4)
  - Rash [None]
  - Erythema [None]
  - Lip swelling [None]
  - Feeling hot [None]

NARRATIVE: CASE EVENT DATE: 20240122
